FAERS Safety Report 23821581 (Version 1)
Quarter: 2024Q2

REPORT INFORMATION
  Report Type: Spontaneous
  Country: US (occurrence: None)
  Receive Date: 20240504
  Receipt Date: 20240504
  Transmission Date: 20240716
  Serious: Yes (Hospitalization)
  Sender: FDA-Public Use
  Company Number: None

PATIENT
  Age: 58 Year
  Sex: Male
  Weight: 107 kg

DRUGS (3)
  1. HEPARIN SODIUM [Suspect]
     Active Substance: HEPARIN SODIUM
     Indication: Cardiac operation
     Dosage: 10.5 ML PER HOUR IV?
     Route: 042
     Dates: start: 20221229, end: 20221231
  2. HEPARIN SODIUM [Suspect]
     Active Substance: HEPARIN SODIUM
     Indication: Atrial fibrillation
  3. WARFARIN SODIUM [Suspect]
     Active Substance: WARFARIN SODIUM
     Indication: Atrial fibrillation
     Dosage: 6 MG EVERY DAY PO
     Route: 048
     Dates: start: 20221224, end: 20221230

REACTIONS (3)
  - Anaemia [None]
  - Thrombocytopenia [None]
  - Thrombosis [None]

NARRATIVE: CASE EVENT DATE: 20221231
